FAERS Safety Report 9348500 (Version 1)
Quarter: 2013Q2

REPORT INFORMATION
  Report Type: Spontaneous
  Country: US (occurrence: None)
  Receive Date: 20130613
  Receipt Date: 20130613
  Transmission Date: 20140414
  Serious: Yes (Hospitalization, Disabling)
  Sender: FDA-Public Use
  Company Number: None

PATIENT
  Age: 51 Year
  Sex: Male
  Weight: 89.81 kg

DRUGS (2)
  1. SAPHRIS [Suspect]
     Indication: BIPOLAR DISORDER
  2. SAPHRIS [Suspect]
     Indication: AMNESIA

REACTIONS (4)
  - Hyperhidrosis [None]
  - Convulsion [None]
  - Swollen tongue [None]
  - Malaise [None]
